FAERS Safety Report 24774483 (Version 1)
Quarter: 2024Q4

REPORT INFORMATION
  Report Type: Report from Study
  Country: NL (occurrence: NL)
  Receive Date: 20241225
  Receipt Date: 20241225
  Transmission Date: 20250115
  Serious: Yes (Hospitalization)
  Sender: ABBVIE
  Company Number: NL-ABBVIE-6063599

PATIENT
  Age: 65 Year
  Sex: Male

DRUGS (12)
  1. CARBIDOPA\LEVODOPA [Suspect]
     Active Substance: CARBIDOPA\LEVODOPA
     Indication: Parkinson^s disease
     Route: 050
     Dates: start: 20241029
  2. CARBIDOPA\LEVODOPA [Suspect]
     Active Substance: CARBIDOPA\LEVODOPA
     Dosage: MD 8.2ML, CD 2.7 ML/H, ED 2 ML, REMAINS AT 16 HRS
     Route: 050
     Dates: start: 20241219
  3. CARBIDOPA\LEVODOPA [Suspect]
     Active Substance: CARBIDOPA\LEVODOPA
     Dosage: MD 8.2ML, CD 2.7 ML/H, ED 2 ML, REMAINS AT 24 HRS
     Route: 050
     Dates: start: 20241218, end: 20241219
  4. CARBIDOPA\LEVODOPA [Suspect]
     Active Substance: CARBIDOPA\LEVODOPA
     Dosage: MD 5.2ML, CD 2.7 ML/H, ED 2 ML, REMAINS AT 16 HRS
     Route: 050
     Dates: start: 20241213, end: 20241218
  5. CARBIDOPA\LEVODOPA [Suspect]
     Active Substance: CARBIDOPA\LEVODOPA
     Dosage: MD 5.2ML, CD 2.5 ML/H, ED 1 ML, GOES TO 16
     Route: 050
     Dates: start: 20241210, end: 20241213
  6. CARBIDOPA\LEVODOPA [Suspect]
     Active Substance: CARBIDOPA\LEVODOPA
     Dosage: MD 5.2ML, CD 2 ML/H, ED 2 ML, REMAINS AT 16
     Route: 050
     Dates: start: 20241209, end: 20241210
  7. PANTOPRAZOLE SODIUM [Concomitant]
     Active Substance: PANTOPRAZOLE SODIUM
     Indication: Gastrointestinal disorder prophylaxis
     Dosage: 1X DAILY
  8. POLYETHYLENE GLYCOLS [Concomitant]
     Active Substance: POLYETHYLENE GLYCOLS
     Indication: Dyspepsia
     Dosage: 1XDAILY
  9. MIRABEGRON [Concomitant]
     Active Substance: MIRABEGRON
     Indication: Bladder disorder
     Dosage: 1XDAILY
  10. BENSERAZIDE HYDROCHLORIDE\LEVODOPA [Concomitant]
     Active Substance: BENSERAZIDE HYDROCHLORIDE\LEVODOPA
     Indication: Parkinson^s disease
     Dosage: DISPER 1XDAILY IF NECESSARY AT NIGHT
  11. SINEMET [Concomitant]
     Active Substance: CARBIDOPA\LEVODOPA
     Indication: Parkinson^s disease
     Dosage: 5XDAILY 3PCS
  12. ALBUTEROL [Concomitant]
     Active Substance: ALBUTEROL
     Indication: Lung disorder
     Dosage: 1 TO 6 PUFFS PER DAY

REACTIONS (2)
  - Lung neoplasm malignant [Not Recovered/Not Resolved]
  - Pneumonia [Not Recovered/Not Resolved]

NARRATIVE: CASE EVENT DATE: 20240101
